FAERS Safety Report 7372660-7 (Version None)
Quarter: 2011Q1

REPORT INFORMATION
  Report Type: 
  Country: None (occurrence: None)
  Receive Date: 20110324
  Receipt Date: 20101029
  Transmission Date: 20110831
  Serious: Yes (Other)
  Sender: FDA-Public Use
  Company Number: US-BAYER-201034239NA

PATIENT
  Sex: Female
  Weight: 68.027 kg

DRUGS (12)
  1. ASPIRIN [Concomitant]
     Dosage: 81 MG, QD
  2. ADVIL LIQUI-GELS [Concomitant]
     Dosage: UNK
     Dates: start: 20000101
  3. BUTALBITAL [Concomitant]
     Dosage: UNK
     Dates: start: 20060101, end: 20090101
  4. YAZ [Suspect]
     Indication: DYSMENORRHOEA
  5. YAZ [Suspect]
     Indication: ACNE
  6. YASMIN [Suspect]
     Indication: ACNE
  7. YASMIN [Suspect]
     Indication: DYSMENORRHOEA
  8. YASMIN [Suspect]
     Indication: MENORRHAGIA
     Dosage: UNK
     Route: 048
     Dates: start: 20040101, end: 20040101
  9. MINOCYCLINE HCL [Concomitant]
     Dosage: UNK
     Dates: start: 20060101
  10. YAZ [Suspect]
     Indication: MENORRHAGIA
     Dosage: UNK
     Route: 048
     Dates: start: 20080901, end: 20081001
  11. MINOCYCLINE HCL [Concomitant]
     Indication: ACNE
     Dosage: UNK UNK, BID
     Dates: start: 20020101, end: 20090101
  12. ASPIRIN [Concomitant]
     Dosage: UNK UNK, QD
     Dates: start: 20080101

REACTIONS (4)
  - CEREBROVASCULAR ACCIDENT [None]
  - PAIN [None]
  - MONOPLEGIA [None]
  - APHASIA [None]
